FAERS Safety Report 10457027 (Version 1)
Quarter: 2014Q3

REPORT INFORMATION
  Report Type: Spontaneous
  Country: US (occurrence: US)
  Receive Date: 20140916
  Receipt Date: 20140916
  Transmission Date: 20150326
  Serious: Yes (Hospitalization, Other)
  Sender: FDA-Public Use
  Company Number: US-PFIZER INC-2014250499

PATIENT
  Age: 59 Year
  Sex: Male

DRUGS (4)
  1. TORISEL [Suspect]
     Active Substance: TEMSIROLIMUS
     Dosage: 20 MG, UNK
     Route: 042
     Dates: start: 200810, end: 20081107
  2. TORISEL [Suspect]
     Active Substance: TEMSIROLIMUS
     Indication: METASTATIC NEOPLASM
     Dosage: UNK
     Route: 042
     Dates: start: 200810, end: 200810
  3. TORISEL [Suspect]
     Active Substance: TEMSIROLIMUS
     Dosage: 20 MG, WEEKLY
     Route: 042
     Dates: start: 20090414, end: 20090623
  4. TORISEL [Suspect]
     Active Substance: TEMSIROLIMUS
     Dosage: UNK, WEEKLY
     Route: 042
     Dates: start: 20090407, end: 20090414

REACTIONS (14)
  - Diabetes mellitus [Unknown]
  - Pneumonia [Recovering/Resolving]
  - Platelet count decreased [Recovering/Resolving]
  - Fatigue [Unknown]
  - Oral mucosal erythema [Unknown]
  - Disease progression [Unknown]
  - Oral pain [Unknown]
  - Sleep apnoea syndrome [Unknown]
  - Pancytopenia [Unknown]
  - Swollen tongue [Unknown]
  - Glossodynia [Unknown]
  - Metastatic neoplasm [Unknown]
  - Lip pain [Unknown]
  - Metabolic disorder [Not Recovered/Not Resolved]

NARRATIVE: CASE EVENT DATE: 2008
